FAERS Safety Report 8960861 (Version 1)
Quarter: 2012Q4

REPORT INFORMATION
  Report Type: Spontaneous
  Country: US (occurrence: None)
  Receive Date: 20121128
  Receipt Date: 20121128
  Transmission Date: 20130627
  Serious: Yes (Hospitalization, Other)
  Sender: FDA-Public Use
  Company Number: E2B_00000477

PATIENT
  Age: 63 Year
  Sex: Male
  Weight: 54.43 kg

DRUGS (2)
  1. LEVOFLOXACIN [Suspect]
     Indication: PROSTATITIS
     Route: 048
     Dates: start: 20121105
  2. CIPROFLOXACIN [Suspect]
     Indication: PROSTATITIS
     Dosage: (500 mg, 2 in 1 D)
     Route: 048
     Dates: start: 201210, end: 20121105

REACTIONS (5)
  - Urethral stenosis [None]
  - Blood creatinine increased [None]
  - Glomerular filtration rate decreased [None]
  - Streptococcus test positive [None]
  - Scar [None]
